FAERS Safety Report 6604537-6 (Version None)
Quarter: 2010Q1

REPORT INFORMATION
  Report Type: 
  Country: None (occurrence: None)
  Receive Date: 20100226
  Receipt Date: 20091111
  Transmission Date: 20100710
  Serious: No
  Sender: FDA-Public Use
  Company Number: A0817244A

PATIENT
  Age: 37 Year
  Sex: Female

DRUGS (5)
  1. LAMICTAL CD [Suspect]
     Indication: BIPOLAR DISORDER
     Dosage: 25MG UNKNOWN
     Route: 048
     Dates: start: 20091029
  2. LEVOXYL [Concomitant]
  3. CYMBALTA [Concomitant]
  4. CYTOMEL [Concomitant]
  5. MIRAPEX [Concomitant]

REACTIONS (1)
  - CONTUSION [None]
